FAERS Safety Report 6151218-1 (Version None)
Quarter: 2009Q2

REPORT INFORMATION
  Report Type: 
  Country: None (occurrence: None)
  Receive Date: 20090410
  Receipt Date: 20080602
  Transmission Date: 20091009
  Serious: Yes (Hospitalization)
  Sender: FDA-Public Use
  Company Number: FR-BRISTOL-MYERS SQUIBB COMPANY-14213508

PATIENT
  Age: 79 Year
  Sex: Male
  Weight: 62 kg

DRUGS (19)
  1. ACETAMINOPHEN [Suspect]
     Dates: start: 20071012, end: 20071014
  2. AUGMENTIN '500' [Suspect]
     Dosage: DOSAGE FORM = 500MG AMOXICILLIN + 62.5 MG CLAVULANIC ACID
     Dates: start: 20071012, end: 20071014
  3. PREVISCAN [Suspect]
     Dates: end: 20071014
  4. PNEUMOREL [Suspect]
     Dosage: PNEUMOREL 0.2%
     Dates: start: 20071012, end: 20071014
  5. AMLODIPINE [Concomitant]
  6. CLONIDINE [Concomitant]
  7. NEXIUM [Concomitant]
  8. NOLVADEX [Concomitant]
  9. KAYEXALATE [Concomitant]
  10. BURINEX [Concomitant]
  11. CARDENSIEL [Concomitant]
  12. RENAGEL [Concomitant]
  13. NITRODERM [Concomitant]
  14. ARANESP [Concomitant]
  15. TAMOXIFEN CITRATE [Concomitant]
  16. UN-ALFA [Concomitant]
  17. UVEDOSE [Concomitant]
  18. AUGMENTIN '500' [Concomitant]
     Dosage: DOSAGE FORM = NO UNIT
     Dates: start: 20071012
  19. DI-ANTALVIC [Concomitant]
     Dates: start: 20071012

REACTIONS (4)
  - ACUTE RESPIRATORY FAILURE [None]
  - ANAEMIA [None]
  - INTERNATIONAL NORMALISED RATIO INCREASED [None]
  - RECTAL HAEMORRHAGE [None]
